FAERS Safety Report 6526794-7 (Version None)
Quarter: 2009Q4

REPORT INFORMATION
  Report Type: 
  Country: None (occurrence: None)
  Receive Date: 20091214
  Receipt Date: 20081222
  Transmission Date: 20100525
  Serious: Yes (Other)
  Sender: FDA-Public Use
  Company Number: 604525

PATIENT
  Age: 38 Year
  Sex: Female

DRUGS (5)
  1. PEG-INTERFERON A-2A (RO 25-8310)  (PEG-INTEFERON ALFA 2A) [Suspect]
     Indication: HEPATITIS C
  2. RIBAVIRIN [Suspect]
     Indication: HEPATITIS C
  3. DIURETICS (DIURETICS) [Suspect]
     Indication: GLOMERULONEPHRITIS MEMBRANOPROLIFERATIVE
  4. VALSARTAN [Concomitant]
     Indication: GLOMERULONEPHRITIS MEMBRANOPROLIFERATIVE
  5. SYNTHROID [Concomitant]

REACTIONS (2)
  - ANAEMIA [None]
  - NEUTROPENIA [None]
